FAERS Safety Report 21811595 (Version 1)
Quarter: 2023Q1

REPORT INFORMATION
  Report Type: Spontaneous
  Country: US (occurrence: US)
  Receive Date: 20230103
  Receipt Date: 20230103
  Transmission Date: 20230417
  Serious: Yes (Hospitalization)
  Sender: FDA-Public Use
  Company Number: US-MYLANLABS-2022M1141376

PATIENT
  Age: 76 Year
  Sex: Female
  Weight: 67 kg

DRUGS (4)
  1. HEPARIN [Interacting]
     Active Substance: HEPARIN SODIUM
     Indication: Anticoagulant therapy
     Dosage: 400 INTERNATIONAL UNIT/KILOGRAM {27000 U}, BOLUS
     Route: 042
  2. HEPARIN [Interacting]
     Active Substance: HEPARIN SODIUM
     Dosage: RECEIVED SEVERAL ADDITIONAL BOLUSES WITH A TOTAL..
     Route: 042
  3. ANDEXANET ALFA [Interacting]
     Active Substance: ANDEXANET ALFA
     Indication: Procoagulant therapy
     Dosage: 400 MILLIGRAM, OVER 30 MIN (BOLUS)
     Route: 042
  4. ANDEXANET ALFA [Interacting]
     Active Substance: ANDEXANET ALFA
     Dosage: LOW-DOSE INFUSION AT 4 MG/MIN WITH TOTAL ADMINISTERED DOSE OF 264MG (INFUSION)
     Route: 042

REACTIONS (2)
  - Drug interaction [Unknown]
  - Heparin resistance [Unknown]
